FAERS Safety Report 13293528 (Version 1)
Quarter: 2017Q1

REPORT INFORMATION
  Report Type: Spontaneous
  Country: US (occurrence: US)
  Receive Date: 20170303
  Receipt Date: 20170303
  Transmission Date: 20170428
  Serious: Yes (Hospitalization)
  Sender: FDA-Public Use
  Company Number: US-JNJFOC-20161203298

PATIENT
  Age: 72 Year
  Sex: Male
  Weight: 112.95 kg

DRUGS (18)
  1. XARELTO [Suspect]
     Active Substance: RIVAROXABAN
     Indication: CEREBROVASCULAR ACCIDENT PROPHYLAXIS
     Route: 048
     Dates: start: 20141105, end: 20151207
  2. LOSARTAN. [Concomitant]
     Active Substance: LOSARTAN
     Route: 065
  3. BABY ASPIRIN [Suspect]
     Active Substance: ASPIRIN
     Indication: PRODUCT USED FOR UNKNOWN INDICATION
     Route: 065
  4. FLOMAX [Concomitant]
     Active Substance: TAMSULOSIN HYDROCHLORIDE
     Dosage: NIGHT
     Route: 065
  5. XARELTO [Suspect]
     Active Substance: RIVAROXABAN
     Indication: ATRIAL FIBRILLATION
     Route: 048
     Dates: start: 20141105, end: 20151207
  6. DILIZEM [Concomitant]
     Route: 065
  7. DIGOXIN. [Concomitant]
     Active Substance: DIGOXIN
     Dosage: LUNCH
     Route: 065
  8. SUCRALFATE. [Concomitant]
     Active Substance: SUCRALFATE
     Route: 065
  9. MYRBETRIQ [Concomitant]
     Active Substance: MIRABEGRON
     Route: 065
  10. GLIPIZIDE. [Concomitant]
     Active Substance: GLIPIZIDE
     Route: 065
  11. GAPENTIN [Concomitant]
     Dosage: NIGHT
     Route: 065
  12. PANTOPRAZOLE [Concomitant]
     Active Substance: PANTOPRAZOLE SODIUM
     Route: 065
  13. GLIPIZIDE. [Concomitant]
     Active Substance: GLIPIZIDE
     Route: 065
  14. SPIRONOLACTONE. [Concomitant]
     Active Substance: SPIRONOLACTONE
     Route: 065
  15. METOPROLOL. [Concomitant]
     Active Substance: METOPROLOL
     Route: 065
  16. FUROSEMIDE. [Concomitant]
     Active Substance: FUROSEMIDE
     Route: 065
  17. ATORVASTATIN [Concomitant]
     Active Substance: ATORVASTATIN
     Dosage: NIGHT
     Route: 065
  18. MYRBETRIQ [Concomitant]
     Active Substance: MIRABEGRON
     Route: 065

REACTIONS (4)
  - Neck pain [Unknown]
  - Gastrointestinal haemorrhage [Recovered/Resolved]
  - Back disorder [Recovering/Resolving]
  - Arthropathy [Recovering/Resolving]

NARRATIVE: CASE EVENT DATE: 201510
